FAERS Safety Report 13897747 (Version 1)
Quarter: 2017Q3

REPORT INFORMATION
  Report Type: Spontaneous
  Country: US (occurrence: US)
  Receive Date: 20170823
  Receipt Date: 20170823
  Transmission Date: 20171127
  Serious: No
  Sender: FDA-Public Use
  Company Number: US-GILEAD-2017-0289418

PATIENT
  Age: 51 Year
  Sex: Female

DRUGS (5)
  1. SOVALDI [Suspect]
     Active Substance: SOFOSBUVIR
     Indication: CHRONIC HEPATITIS C
     Dosage: 400 MG, QD
     Route: 065
     Dates: start: 201402
  2. RIBAVIRIN. [Concomitant]
     Active Substance: RIBAVIRIN
     Indication: CHRONIC HEPATITIS C
     Dosage: 1200 MG, BID
     Route: 065
  3. RIBAVIRIN. [Concomitant]
     Active Substance: RIBAVIRIN
     Dosage: 600 MG, TID
     Route: 065
     Dates: start: 201402
  4. INTERFERON ALFA 2A [Concomitant]
     Active Substance: INTERFERON ALFA-2A
     Indication: CHRONIC HEPATITIS C
     Dosage: 180 MCG,
     Dates: start: 201402
  5. RIBAVIRIN. [Concomitant]
     Active Substance: RIBAVIRIN
     Dosage: 600 MG, BID
     Route: 048

REACTIONS (12)
  - Diarrhoea [Unknown]
  - Feeding disorder [Unknown]
  - Fatigue [Unknown]
  - Chills [Unknown]
  - Oropharyngeal pain [Unknown]
  - Cough [Unknown]
  - Secretion discharge [Unknown]
  - Retching [Unknown]
  - Dyspepsia [Unknown]
  - Dehydration [Unknown]
  - Vomiting [Unknown]
  - Viral infection [Unknown]
